FAERS Safety Report 17669094 (Version 3)
Quarter: 2020Q3

REPORT INFORMATION
  Report Type: Spontaneous
  Country: DE (occurrence: DE)
  Receive Date: 20200415
  Receipt Date: 20200728
  Transmission Date: 20201102
  Serious: Yes (Hospitalization, Other)
  Sender: FDA-Public Use
  Company Number: DE-SUN PHARMACEUTICAL INDUSTRIES LTD-2020RR-243826

PATIENT
  Age: 14 Year
  Sex: Female
  Weight: 67 kg

DRUGS (1)
  1. SERTRALINE [Suspect]
     Active Substance: SERTRALINE HYDROCHLORIDE
     Indication: POISONING
     Dosage: 50MG  0?10?0?0
     Route: 065
     Dates: start: 20191229, end: 20191229

REACTIONS (9)
  - Dizziness [Unknown]
  - Toxicity to various agents [Unknown]
  - Drug ineffective [Unknown]
  - Abdominal pain [Unknown]
  - Menorrhagia [Unknown]
  - Intentional product misuse [Unknown]
  - Tremor [Unknown]
  - Intentional overdose [Unknown]
  - Polymenorrhoea [Unknown]

NARRATIVE: CASE EVENT DATE: 201911
